FAERS Safety Report 15058362 (Version 1)
Quarter: 2018Q2

REPORT INFORMATION
  Report Type: Spontaneous
  Country: FR (occurrence: FR)
  Receive Date: 20180625
  Receipt Date: 20180625
  Transmission Date: 20180711
  Serious: Yes (Other)
  Sender: FDA-Public Use
  Company Number: FR-TEVA-2018-FR-915636

PATIENT
  Age: 70 Year
  Sex: Male

DRUGS (5)
  1. LERCAN 10 MG [Concomitant]
     Dosage: 2 DOSAGE FORMS DAILY; AT 9: 00 AM AND 9:00 PM
  2. TRIATEC 2.5 MG [Concomitant]
     Active Substance: RAMIPRIL
     Dosage: 2 DOSAGE FORMS DAILY; AT 9: 00 AM AND 9:00 PM
  3. PROPRANOLOL [Suspect]
     Active Substance: PROPRANOLOL HYDROCHLORIDE
     Dosage: 2 DOSAGE FORMS DAILY; 0.5 DF AT 6:00 AM, 1:00 PM, 6:00 PM AND 11:00 PM
     Route: 065
  4. SERESTA [Concomitant]
     Active Substance: OXAZEPAM
     Dosage: AT 1:00 PM
  5. PREVISCAN (FLUINDIONE) [Concomitant]
     Active Substance: FLUINDIONE
     Dosage: AT 9:00 PM

REACTIONS (4)
  - Gastrointestinal disorder [Unknown]
  - Vision blurred [Not Recovered/Not Resolved]
  - Peripheral coldness [Not Recovered/Not Resolved]
  - Bradycardia [Not Recovered/Not Resolved]
